FAERS Safety Report 11423844 (Version 1)
Quarter: 2015Q3

REPORT INFORMATION
  Report Type: Spontaneous
  Country: US (occurrence: US)
  Receive Date: 20150827
  Receipt Date: 20150827
  Transmission Date: 20151125
  Serious: No
  Sender: FDA-Public Use
  Company Number: US-JNJFOC-20150601335

PATIENT
  Age: 36 Month
  Sex: Male
  Weight: 14.97 kg

DRUGS (3)
  1. CHILDRENS MOTRIN [Suspect]
     Active Substance: IBUPROFEN
     Indication: PYREXIA
     Dosage: 1-2 ML, 2 ML, TO START, AND IT WOULD ALL ADD UP TO 5 ML
     Route: 048
     Dates: start: 20150601
  2. CHILDRENS MOTRIN [Suspect]
     Active Substance: IBUPROFEN
     Route: 048
  3. FLINTSTONE [Concomitant]
     Indication: VITAMIN SUPPLEMENTATION
     Route: 065

REACTIONS (2)
  - Incorrect dose administered [Recovered/Resolved]
  - Vomiting [Recovered/Resolved]
